FAERS Safety Report 9434279 (Version 2)
Quarter: 2014Q1

REPORT INFORMATION
  Report Type: Report from Study
  Country: IT (occurrence: IT)
  Receive Date: 20130801
  Receipt Date: 20140226
  Transmission Date: 20141002
  Serious: Yes (Hospitalization)
  Sender: FDA-Public Use
  Company Number: PHHY2013IT081998

PATIENT
  Age: 66 Year
  Sex: Female
  Weight: 75 kg

DRUGS (13)
  1. CERTICAN [Suspect]
     Indication: IMMUNOSUPPRESSION
     Dosage: 0.5 MG, UNK
     Route: 048
     Dates: start: 20090121
  2. SANDIMMUN NEORAL [Concomitant]
     Dosage: 115 MG, UNK
  3. DILATREND [Concomitant]
     Dosage: 6.25 MG, UNK
  4. PRITOR [Concomitant]
     Dosage: 80 MG, UNK
  5. CARDIOASPIRIN [Concomitant]
     Dosage: UNK UKN, UNK
  6. ESKIM [Concomitant]
     Dosage: 1000 MG, UNK
  7. ZYLORIC [Concomitant]
     Dosage: 300 MG, UNK
  8. DEURSIL [Concomitant]
     Dosage: 300 MG, UNK
  9. PANTORC [Concomitant]
     Dosage: 20 MG, UNK
  10. EPREX [Concomitant]
     Dosage: 4000 IU, UNK
  11. FERRO GRAD [Concomitant]
     Dosage: 525 MG, UNK
  12. LEVEMIR [Concomitant]
     Dosage: UNK UKN, UNK
  13. NOVORAPID [Concomitant]
     Dosage: UNK UKN, UNK

REACTIONS (2)
  - Cardiac failure [Recovered/Resolved with Sequelae]
  - Complications of transplanted heart [Recovered/Resolved with Sequelae]
